FAERS Safety Report 10908259 (Version 2)
Quarter: 2015Q1

REPORT INFORMATION
  Report Type: Spontaneous
  Country: ES (occurrence: None)
  Receive Date: 20150309
  Receipt Date: 20150324
  Transmission Date: 20150721
  Serious: Yes (Hospitalization)
  Sender: FDA-Public Use
  Company Number: KAD201503-000417

PATIENT
  Age: 69 Year
  Sex: Female

DRUGS (3)
  1. TELAPREVIR (TELAPREVIR) [Suspect]
     Active Substance: TELAPREVIR
     Indication: CHRONIC HEPATITIS C
     Dates: start: 201210
  2. RIBAVIRIN (RIBAVIRIN) [Suspect]
     Active Substance: RIBAVIRIN
     Indication: CHRONIC HEPATITIS C
     Dosage: 1000
     Dates: start: 201210
  3. PEG-INTERFERON-ALFA-2A [Suspect]
     Active Substance: PEGINTERFERON ALFA-2A
     Indication: CHRONIC HEPATITIS C
     Dates: start: 201210

REACTIONS (16)
  - Cellulitis [None]
  - Haemoglobin decreased [None]
  - Parotitis [None]
  - Dyspnoea [None]
  - Blood albumin decreased [None]
  - Haptoglobin decreased [None]
  - Pleural effusion [None]
  - Dermatitis [None]
  - Ascites [None]
  - Mucosal inflammation [None]
  - Sepsis [None]
  - Oedema [None]
  - Haematocrit decreased [None]
  - Mouth ulceration [None]
  - Tachycardia [None]
  - Depressed level of consciousness [None]
